FAERS Safety Report 9971391 (Version 1)
Quarter: 2014Q1

REPORT INFORMATION
  Report Type: Spontaneous
  Country: US (occurrence: US)
  Receive Date: 20140306
  Receipt Date: 20140306
  Transmission Date: 20141002
  Serious: No
  Sender: FDA-Public Use
  Company Number: US-ABBVIE-13P-163-1150907-00

PATIENT
  Age: 44 Year
  Sex: Male
  Weight: 72.64 kg

DRUGS (3)
  1. HUMIRA [Suspect]
     Indication: ANKYLOSING SPONDYLITIS
     Dates: start: 201308
  2. IBUPROFEN [Concomitant]
     Indication: INFLAMMATION
  3. TRAMADOL [Concomitant]
     Indication: INFLAMMATION

REACTIONS (2)
  - Drug dose omission [Unknown]
  - Arthralgia [Not Recovered/Not Resolved]
